FAERS Safety Report 8846488 (Version 2)
Quarter: 2012Q4

REPORT INFORMATION
  Report Type: Report from Study
  Country: AU (occurrence: AU)
  Receive Date: 20121017
  Receipt Date: 20121105
  Transmission Date: 20130627
  Serious: Yes (Death)
  Sender: FDA-Public Use
  Company Number: AU-ROCHE-1145292

PATIENT
  Sex: Male

DRUGS (2)
  1. VALGANCICLOVIR HYDROCHLORIDE [Suspect]
     Indication: CYTOMEGALOVIRUS INFECTION
     Route: 048
  2. AVASTIN [Concomitant]
     Route: 042

REACTIONS (1)
  - Disease progression [Fatal]
